FAERS Safety Report 15116375 (Version 1)
Quarter: 2018Q3

REPORT INFORMATION
  Report Type: Report from Study
  Country: FR (occurrence: FR)
  Receive Date: 20180706
  Receipt Date: 20180706
  Transmission Date: 20181010
  Serious: Yes (Death)
  Sender: FDA-Public Use
  Company Number: FR-PFIZER INC-FR-WYE-G03948509

PATIENT
  Age: 62 Year
  Sex: Female
  Weight: 83 kg

DRUGS (17)
  1. GEMTUZUMAB OZOGAMICIN [Suspect]
     Active Substance: GEMTUZUMAB OZOGAMICIN
     Dosage: 3 MG/M2, CYCLIC (D1)
     Route: 042
     Dates: start: 20090518, end: 20090518
  2. DAUNORUBICIN [Suspect]
     Active Substance: DAUNORUBICIN
     Dosage: 60 MG/M2, CYCLIC (DAY 1)
     Route: 042
     Dates: start: 20090518, end: 20090518
  3. INEGY [Concomitant]
     Active Substance: EZETIMIBE\SIMVASTATIN
     Dosage: UNK
     Route: 048
     Dates: start: 20090513
  4. ZELITREX [Concomitant]
     Active Substance: VALACYCLOVIR HYDROCHLORIDE
     Dosage: 500 MG, DAILY
     Route: 048
     Dates: start: 20090628
  5. METHYLPREDNISOLONE. [Concomitant]
     Active Substance: METHYLPREDNISOLONE
     Indication: PREMEDICATION
     Dosage: UNK
  6. CARDENSIEL [Concomitant]
     Active Substance: BISOPROLOL FUMARATE
     Dosage: 2.5 MG, DAILY
     Route: 048
     Dates: start: 20090601, end: 20090812
  7. GEMTUZUMAB OZOGAMICIN [Suspect]
     Active Substance: GEMTUZUMAB OZOGAMICIN
     Indication: ACUTE MYELOID LEUKAEMIA
     Dosage: 3 MG/M2, CYCLIC ( (D1, D4, D7)
     Route: 042
     Dates: start: 20090402, end: 20090408
  8. DAUNORUBICIN [Suspect]
     Active Substance: DAUNORUBICIN
     Indication: ACUTE MYELOID LEUKAEMIA
     Dosage: 60 MG/M2, CYCLIC (DAY 1 THROUGH DAY 3)
     Route: 042
     Dates: start: 20090402, end: 20090404
  9. TRIATEC [Concomitant]
     Dosage: 1.25 MG, DAILY
     Route: 048
     Dates: start: 20090608, end: 20090713
  10. ARACYTINE [Suspect]
     Active Substance: CYTARABINE
     Dosage: 1000 MG/M2, CYCLIC (DAY 1 THROUGH DAY 4)
     Route: 042
     Dates: start: 20090518, end: 20090521
  11. ARACYTINE [Suspect]
     Active Substance: CYTARABINE
     Indication: ACUTE MYELOID LEUKAEMIA
     Dosage: 200 MG/M2, CYCLIC (DAY 1 THROUGH DAY 7)
     Route: 042
     Dates: start: 20090402, end: 20090408
  12. ZELITREX [Concomitant]
     Active Substance: VALACYCLOVIR HYDROCHLORIDE
     Dosage: 1000 MG, DAILY
     Route: 048
     Dates: start: 20090429, end: 20090627
  13. METFORMINE [Concomitant]
     Active Substance: METFORMIN HYDROCHLORIDE
     Dosage: 1000 MG, UNK
     Dates: start: 20090513, end: 20140514
  14. CARDENSIEL [Concomitant]
     Active Substance: BISOPROLOL FUMARATE
     Dosage: 1.25 MG, DAILY
     Route: 048
     Dates: start: 20090423, end: 20090531
  15. TRIATEC [Concomitant]
     Dosage: 7.5 MG, DAILY
     Route: 048
     Dates: start: 20090604, end: 20090608
  16. EFFEXOR [Concomitant]
     Active Substance: VENLAFAXINE HYDROCHLORIDE
     Dosage: 37.5 MG, DAILY
     Route: 048
     Dates: start: 20090402
  17. TRIATEC [Concomitant]
     Dosage: 3.75 MG, DAILY
     Route: 048
     Dates: start: 20090403, end: 20090525

REACTIONS (1)
  - Venoocclusive liver disease [Fatal]

NARRATIVE: CASE EVENT DATE: 20090627
